FAERS Safety Report 12825252 (Version 1)
Quarter: 2016Q4

REPORT INFORMATION
  Report Type: Spontaneous
  Country: US (occurrence: US)
  Receive Date: 20161006
  Receipt Date: 20161006
  Transmission Date: 20170207
  Serious: No
  Sender: FDA-Public Use
  Company Number: US-FRESENIUS KABI-FK201607396

PATIENT

DRUGS (1)
  1. CISATRACURIUM BESYLATE INJECTION [Suspect]
     Active Substance: CISATRACURIUM BESYLATE
     Indication: TRACHEOSTOMY
     Route: 042

REACTIONS (1)
  - Drug ineffective [Unknown]
